FAERS Safety Report 24856267 (Version 1)
Quarter: 2025Q1

REPORT INFORMATION
  Report Type: Spontaneous
  Country: GB (occurrence: GB)
  Receive Date: 20250117
  Receipt Date: 20250117
  Transmission Date: 20250409
  Serious: Yes (Other)
  Sender: PFIZER
  Company Number: GB-ROCHE-10000175496

PATIENT
  Age: 13 Year
  Sex: Female

DRUGS (1)
  1. RITUXIMAB [Suspect]
     Active Substance: RITUXIMAB
     Indication: Neuromyelitis optica spectrum disorder

REACTIONS (5)
  - Anaphylactic reaction [Unknown]
  - Blindness [Unknown]
  - Pruritus [Unknown]
  - Dermatitis artefacta [Unknown]
  - Off label use [Unknown]
